FAERS Safety Report 5468670-7 (Version None)
Quarter: 2007Q3

REPORT INFORMATION
  Report Type: 
  Country: None (occurrence: None)
  Receive Date: 20070926
  Receipt Date: 20070917
  Transmission Date: 20080115
  Serious: Yes (Hospitalization)
  Sender: FDA-Public Use
  Company Number: US-PFIZER INC-2006102079

PATIENT
  Sex: Male
  Weight: 75.3 kg

DRUGS (10)
  1. ATORVASTATIN CALCIUM [Suspect]
     Indication: CORONARY ARTERY DISEASE
     Route: 048
     Dates: start: 20050510, end: 20050606
  2. ATORVASTATIN CALCIUM [Suspect]
     Route: 048
     Dates: start: 20050607, end: 20060714
  3. NIFEDIPINE [Concomitant]
     Route: 048
  4. LOSARTAN POSTASSIUM [Concomitant]
     Route: 048
     Dates: start: 20060104
  5. RABEPRAZOLE SODIUM [Concomitant]
     Route: 048
     Dates: start: 20030401
  6. ASPIRIN [Concomitant]
     Route: 048
     Dates: start: 19960101
  7. PRILOSEC [Concomitant]
     Route: 048
     Dates: start: 20050301
  8. PROPACET 100 [Concomitant]
     Dosage: TEXT:N100, 1 TABLET-FREQ:PRN
     Route: 048
     Dates: start: 20051201
  9. PREDNISONE [Concomitant]
     Route: 048
     Dates: start: 20050915
  10. LEXAPRO [Concomitant]
     Route: 048

REACTIONS (2)
  - CHOLECYSTITIS [None]
  - CHOLELITHIASIS [None]
